FAERS Safety Report 6127663-7 (Version None)
Quarter: 2009Q1

REPORT INFORMATION
  Report Type: 
  Country: None (occurrence: None)
  Receive Date: 20090319
  Receipt Date: 20090319
  Transmission Date: 20090719
  Serious: Yes (Other)
  Sender: FDA-Public Use
  Company Number: None

PATIENT
  Sex: Female
  Weight: 99 kg

DRUGS (8)
  1. SUNITINIB [Suspect]
     Indication: RENAL CANCER
     Dosage: 50 MG DAILY ORAL
     Route: 048
     Dates: start: 20081210, end: 20090217
  2. VICODIN [Concomitant]
  3. SINGULAIR [Concomitant]
  4. FOSAMAX [Concomitant]
  5. ADVAIR DISKUS 100/50 [Concomitant]
  6. ALBUTEROL [Concomitant]
  7. FLONASE [Concomitant]
  8. LOVASTATIN [Concomitant]

REACTIONS (1)
  - ATRIAL FIBRILLATION [None]
